FAERS Safety Report 10482182 (Version 2)
Quarter: 2014Q4

REPORT INFORMATION
  Report Type: Spontaneous
  Country: PT (occurrence: PT)
  Receive Date: 20140929
  Receipt Date: 20141009
  Transmission Date: 20150528
  Serious: Yes (Death)
  Sender: FDA-Public Use
  Company Number: PT-ASTRAZENECA-2014SE71823

PATIENT
  Age: 44 Year
  Sex: Female

DRUGS (8)
  1. TRITICUM AESTIVUM POLLEN. [Suspect]
     Active Substance: TRITICUM AESTIVUM POLLEN
     Indication: DEPRESSION
     Route: 048
  2. TRITICUM AESTIVUM POLLEN. [Suspect]
     Active Substance: TRITICUM AESTIVUM POLLEN
     Indication: DEPRESSION
     Dosage: 2 AND HALF PACK OF DRUG IN ONE MONTH PERIOD, ESTIMATED DAILY DOSE OF APPROXIMATELY 600MG TO 900 MG
     Route: 048
  3. ABILIFY [Suspect]
     Active Substance: ARIPIPRAZOLE
     Route: 048
  4. TRITICUM AESTIVUM POLLEN. [Suspect]
     Active Substance: TRITICUM AESTIVUM POLLEN
     Indication: DEPRESSION
     Route: 048
  5. TRITICUM AESTIVUM POLLEN. [Suspect]
     Active Substance: TRITICUM AESTIVUM POLLEN
     Indication: DEPRESSION
     Route: 048
  6. TRITICUM AESTIVUM POLLEN. [Suspect]
     Active Substance: TRITICUM AESTIVUM POLLEN
     Indication: DEPRESSION
     Route: 048
  7. QUETIAPINE [Suspect]
     Active Substance: QUETIAPINE
     Indication: INSOMNIA
     Route: 048
  8. TRITICUM AESTIVUM POLLEN. [Suspect]
     Active Substance: TRITICUM AESTIVUM POLLEN
     Indication: DEPRESSION
     Route: 048

REACTIONS (2)
  - Insomnia [Unknown]
  - Overdose [Fatal]

NARRATIVE: CASE EVENT DATE: 20140914
